FAERS Safety Report 8226357-1 (Version None)
Quarter: 2012Q1

REPORT INFORMATION
  Report Type: 
  Country: None (occurrence: None)
  Receive Date: 20120321
  Receipt Date: 20120315
  Transmission Date: 20120608
  Serious: Yes (Other)
  Sender: FDA-Public Use
  Company Number: JP-VERTEX PHARMACEUTICALS INC.-AE-2012-003963

PATIENT
  Age: 71 Year
  Sex: Female

DRUGS (3)
  1. PEG-INTRON [Concomitant]
     Indication: HEPATITIS C
     Route: 058
     Dates: end: 20120313
  2. TELAVIC (TELAPREVIR) [Suspect]
     Indication: HEPATITIS C
     Route: 048
     Dates: start: 20120131, end: 20120314
  3. REBETOL [Concomitant]
     Indication: HEPATITIS C
     Route: 048
     Dates: end: 20120314

REACTIONS (1)
  - HAEMOPTYSIS [None]
